FAERS Safety Report 12413586 (Version 1)
Quarter: 2016Q2

REPORT INFORMATION
  Report Type: Spontaneous
  Country: US (occurrence: US)
  Receive Date: 20160527
  Receipt Date: 20160527
  Transmission Date: 20160815
  Serious: Yes (Other)
  Sender: FDA-Public Use
  Company Number: US-PFIZER INC-2016270176

PATIENT
  Sex: Male
  Weight: 13.7 kg

DRUGS (1)
  1. XYNTHA [Suspect]
     Active Substance: ANTIHEMOPHILIC FACTOR, HUMAN RECOMBINANT RESIDUES 743-1636 DELETED
     Dosage: 717 IU, 3 TIMES A WEEK

REACTIONS (1)
  - Factor VIII inhibition [Unknown]

NARRATIVE: CASE EVENT DATE: 20160205
